FAERS Safety Report 6973999-7 (Version None)
Quarter: 2010Q3

REPORT INFORMATION
  Report Type: 
  Country: None (occurrence: None)
  Receive Date: 20100909
  Receipt Date: 20100902
  Transmission Date: 20110219
  Serious: Yes (Death, Other)
  Sender: FDA-Public Use
  Company Number: US-BAXTER-2010BH021790

PATIENT
  Age: 69 Year
  Sex: Male

DRUGS (2)
  1. DIANEAL [Suspect]
     Indication: PERITONEAL DIALYSIS
     Route: 033
     Dates: start: 20100201, end: 20100816
  2. DIANEAL [Suspect]
     Indication: PERITONEAL DIALYSIS
     Route: 033
     Dates: start: 20100201, end: 20100816

REACTIONS (4)
  - HAEMOPHILUS INFECTION [None]
  - MYOCARDIAL INFARCTION [None]
  - PERITONITIS BACTERIAL [None]
  - SEPSIS [None]
